FAERS Safety Report 9198697 (Version 2)
Quarter: 2013Q4

REPORT INFORMATION
  Report Type: Spontaneous
  Country: US (occurrence: US)
  Receive Date: 20130329
  Receipt Date: 20131010
  Transmission Date: 20140711
  Serious: Yes (Other)
  Sender: FDA-Public Use
  Company Number: US-PFIZER INC-2013100048

PATIENT
  Sex: Female

DRUGS (7)
  1. LYRICA [Suspect]
     Indication: FIBROMYALGIA
     Dosage: UNK
     Dates: start: 20120702
  2. LYRICA [Suspect]
     Dosage: 25 MG, UNK
     Route: 048
  3. LYRICA [Suspect]
     Dosage: 75 MG, UNK
     Route: 048
  4. LYRICA [Suspect]
     Dosage: 150 MG, 3X/DAY
     Route: 048
  5. TRAMADOL [Concomitant]
     Dosage: 100 MG, 3X/DAY
  6. MELOXICAM [Concomitant]
     Dosage: 15 MG, 1X/DAY
  7. CORTISONE [Concomitant]

REACTIONS (7)
  - Weight decreased [Unknown]
  - Arthritis [Unknown]
  - Memory impairment [Unknown]
  - Malaise [Unknown]
  - Therapeutic response unexpected [Unknown]
  - Pain [Unknown]
  - Gait disturbance [Unknown]
